FAERS Safety Report 4887402-4 (Version None)
Quarter: 2006Q1

REPORT INFORMATION
  Report Type: 
  Country: None (occurrence: None)
  Receive Date: 20060118
  Receipt Date: 20060106
  Transmission Date: 20060701
  Serious: Yes (Hospitalization)
  Sender: FDA-Public Use
  Company Number: 200511987BBE

PATIENT
  Age: 53 Year
  Sex: Female
  Weight: 127 kg

DRUGS (10)
  1. GAMUNEX [Suspect]
     Indication: VASCULITIS
     Dosage: 100 G, Q1MON, INTRAVENOUS
     Route: 042
     Dates: start: 20051118
  2. GAMMAGARD [Concomitant]
  3. PREDNISONE [Concomitant]
  4. NEURONTIN [Concomitant]
  5. AZATHIOPRINE [Concomitant]
  6. MULTIVITAMIN [Concomitant]
  7. PROTONIX [Concomitant]
  8. AMILORIDE HCL [Concomitant]
  9. TYLENOL-500 [Concomitant]
  10. ASPIRIN [Concomitant]

REACTIONS (10)
  - ASTHENIA [None]
  - BLOOD PRESSURE INCREASED [None]
  - DYSPNOEA [None]
  - FEELING ABNORMAL [None]
  - HYPERVISCOSITY SYNDROME [None]
  - MUSCLE SPASMS [None]
  - OXYGEN SATURATION DECREASED [None]
  - PROTEIN TOTAL INCREASED [None]
  - RED BLOOD CELL SEDIMENTATION RATE INCREASED [None]
  - TRANSIENT ISCHAEMIC ATTACK [None]
